FAERS Safety Report 16411175 (Version 1)
Quarter: 2019Q2

REPORT INFORMATION
  Report Type: Report from Study
  Country: US (occurrence: US)
  Receive Date: 20190610
  Receipt Date: 20190610
  Transmission Date: 20190711
  Serious: Yes (Death, Hospitalization)
  Sender: FDA-Public Use
  Company Number: US-ACTELION-A-US2016-139903

PATIENT
  Age: 51 Year
  Sex: Male
  Weight: 97.51 kg

DRUGS (9)
  1. COUMADIN [Concomitant]
     Active Substance: WARFARIN SODIUM
  2. VELETRI [Suspect]
     Active Substance: EPOPROSTENOL
     Indication: PULMONARY HYPERTENSION
     Dosage: 39 NG/KG, PER MIN
     Route: 042
  3. VELETRI [Suspect]
     Active Substance: EPOPROSTENOL
     Dosage: 11 NG/KG, PER MIN
     Route: 042
     Dates: start: 20160714
  4. VELETRI [Suspect]
     Active Substance: EPOPROSTENOL
     Dosage: 29 NG/KG, PER MIN
     Route: 042
  5. LETAIRIS [Concomitant]
     Active Substance: AMBRISENTAN
  6. VELETRI [Suspect]
     Active Substance: EPOPROSTENOL
     Dosage: 13 NG/KG, PER MIN
     Route: 042
     Dates: start: 20160726
  7. RIOCIGUAT. [Concomitant]
     Active Substance: RIOCIGUAT
  8. VELETRI [Suspect]
     Active Substance: EPOPROSTENOL
     Dosage: 37 NG/KG, PER MIN
     Route: 042
  9. ADCIRCA [Concomitant]
     Active Substance: TADALAFIL

REACTIONS (19)
  - Fluid retention [Unknown]
  - Condition aggravated [Unknown]
  - Dyspnoea [Unknown]
  - Flushing [Unknown]
  - Nausea [Unknown]
  - Erythema [Unknown]
  - Pain in extremity [Unknown]
  - Respiratory distress [Unknown]
  - Diarrhoea [Unknown]
  - Somnolence [Unknown]
  - Swelling face [Unknown]
  - Oedema peripheral [Unknown]
  - Generalised erythema [Unknown]
  - Death [Fatal]
  - Pulmonary hypertension [Unknown]
  - Fatigue [Unknown]
  - Pain in jaw [Unknown]
  - Feeling abnormal [Unknown]
  - Myalgia [Unknown]

NARRATIVE: CASE EVENT DATE: 20160727
